FAERS Safety Report 4608860-6 (Version None)
Quarter: 2005Q1

REPORT INFORMATION
  Report Type: 
  Country: None (occurrence: None)
  Receive Date: 20050311
  Receipt Date: 20050301
  Transmission Date: 20050727
  Serious: Yes (Hospitalization)
  Sender: FDA-Public Use
  Company Number: 2005023513

PATIENT
  Age: 38 Year
  Sex: Male

DRUGS (3)
  1. CLINDAMYCIN PHOSPHATE [Suspect]
     Indication: ILL-DEFINED DISORDER
     Dosage: 2400 MG (600 MG, QID INTERVAL: EVERY DAY), INTRAVENOUS
     Route: 042
     Dates: start: 20041215, end: 20041226
  2. PHENOBARBITAL TAB [Suspect]
     Indication: ILL-DEFINED DISORDER
     Dosage: 300 MG (INTERVAL: EVERY DAY), ORAL
     Route: 048
     Dates: start: 20041216, end: 20041226
  3. CEFOTAXIME SODIUM [Suspect]
     Indication: ILL-DEFINED DISORDER
     Dosage: 3 GRAM (INTERVAL: EVERY DAY), INTRAVENOUS
     Route: 042
     Dates: start: 20041217, end: 20041224

REACTIONS (3)
  - DRUG RASH WITH EOSINOPHILIA AND SYSTEMIC SYMPTOMS [None]
  - FACE OEDEMA [None]
  - LYMPHADENOPATHY [None]
